FAERS Safety Report 9014044 (Version 1)
Quarter: 2013Q1

REPORT INFORMATION
  Report Type: Spontaneous
  Country: US (occurrence: US)
  Receive Date: 20130115
  Receipt Date: 20130115
  Transmission Date: 20140127
  Serious: Yes (Other)
  Sender: FDA-Public Use
  Company Number: US-009507513-0911USA00603

PATIENT
  Age: 43 Year
  Sex: Female
  Weight: 100.7 kg

DRUGS (2)
  1. SINGULAIR [Suspect]
     Indication: ASTHMA
     Dosage: 10 MG, QD, DURATION 7-8 YEARS
     Route: 048
     Dates: start: 2000, end: 2008
  2. SINGULAIR [Suspect]
     Indication: HYPERSENSITIVITY

REACTIONS (7)
  - Blood cholesterol increased [Recovering/Resolving]
  - Ear pain [Recovering/Resolving]
  - Pain [Recovering/Resolving]
  - Depression [Recovering/Resolving]
  - Insomnia [Recovering/Resolving]
  - Nightmare [Recovering/Resolving]
  - Somnambulism [Recovering/Resolving]
